FAERS Safety Report 21904560 (Version 1)
Quarter: 2023Q1

REPORT INFORMATION
  Report Type: Spontaneous
  Country: US (occurrence: None)
  Receive Date: 20230124
  Receipt Date: 20230124
  Transmission Date: 20230417
  Serious: No
  Sender: FDA-Public Use
  Company Number: None

PATIENT
  Age: 74 Year
  Sex: Male
  Weight: 94 kg

DRUGS (1)
  1. LISINOPRIL [Suspect]
     Active Substance: LISINOPRIL
     Indication: Hypertension
     Dosage: FREQUENCY : DAILY;?
     Route: 048
     Dates: start: 20160602, end: 20221202

REACTIONS (6)
  - Circumoral oedema [None]
  - Drooling [None]
  - Urticaria [None]
  - Dysarthria [None]
  - Tongue oedema [None]
  - Urticaria [None]

NARRATIVE: CASE EVENT DATE: 20221202
